FAERS Safety Report 19567687 (Version 1)
Quarter: 2021Q3

REPORT INFORMATION
  Report Type: Spontaneous
  Country: GB (occurrence: US)
  Receive Date: 20210716
  Receipt Date: 20210716
  Transmission Date: 20211014
  Serious: Yes (Other)
  Sender: FDA-Public Use
  Company Number: GB-MYLANLABS-2021M1041174

PATIENT

DRUGS (3)
  1. DIGITEK [Suspect]
     Active Substance: DIGOXIN
     Indication: ATRIAL FIBRILLATION
     Dosage: 0.125 MG, QD
  2. DIGITEK [Suspect]
     Active Substance: DIGOXIN
     Dosage: 0.250 MG, QD (DOUBLING OF DIGOXIN DOSE)
  3. AMIODARONE [Suspect]
     Active Substance: AMIODARONE
     Indication: ATRIAL FIBRILLATION
     Dosage: 300 MG, BID

REACTIONS (3)
  - Dyschromatopsia [Recovering/Resolving]
  - Toxicity to various agents [Unknown]
  - Visual impairment [Recovering/Resolving]
